FAERS Safety Report 8088646-3 (Version None)
Quarter: 2012Q1

REPORT INFORMATION
  Report Type: 
  Country: None (occurrence: None)
  Receive Date: 20120128
  Receipt Date: 20110503
  Transmission Date: 20120608
  Serious: No
  Sender: FDA-Public Use
  Company Number: US-ABBOTT-11P-163-0723392-00

PATIENT
  Sex: Female

DRUGS (3)
  1. HUMIRA [Suspect]
     Route: 058
     Dates: start: 20070101, end: 20110325
  2. HUMIRA [Suspect]
     Indication: RHEUMATOID ARTHRITIS
     Route: 058
     Dates: start: 20070101, end: 20070101
  3. HUMIRA [Suspect]
     Route: 058
     Dates: start: 20110420, end: 20110504

REACTIONS (11)
  - MUSCULOSKELETAL PAIN [None]
  - NECK PAIN [None]
  - FALL [None]
  - CEREBRAL HYPOPERFUSION [None]
  - RHEUMATOID ARTHRITIS [None]
  - MEMORY IMPAIRMENT [None]
  - HEADACHE [None]
  - CERVICAL SPINAL STENOSIS [None]
  - STAPHYLOCOCCAL INFECTION [None]
  - RASH MORBILLIFORM [None]
  - INTERVERTEBRAL DISC PROTRUSION [None]
